FAERS Safety Report 13518473 (Version 1)
Quarter: 2017Q2

REPORT INFORMATION
  Report Type: Spontaneous
  Country: US (occurrence: US)
  Receive Date: 20170505
  Receipt Date: 20170505
  Transmission Date: 20170830
  Serious: Yes (Other)
  Sender: FDA-Public Use
  Company Number: US-ASTRAZENECA-2017SE46431

PATIENT
  Sex: Male

DRUGS (2)
  1. BRILINTA [Suspect]
     Active Substance: TICAGRELOR
     Indication: STENT PLACEMENT
     Route: 048
  2. ASPIRIN. [Concomitant]
     Active Substance: ASPIRIN

REACTIONS (6)
  - Therapy cessation [Not Recovered/Not Resolved]
  - Blood cholesterol abnormal [Unknown]
  - Product use issue [Unknown]
  - Arterial thrombosis [Unknown]
  - Off label use [Unknown]
  - Diabetes mellitus [Unknown]
